FAERS Safety Report 10389776 (Version 2)
Quarter: 2014Q3

REPORT INFORMATION
  Report Type: Spontaneous
  Country: US (occurrence: None)
  Receive Date: 20140813
  Receipt Date: 20140905
  Transmission Date: 20150326
  Serious: Yes (Hospitalization)
  Sender: FDA-Public Use
  Company Number: 2014VID00022

PATIENT
  Age: 59 Year
  Sex: Female

DRUGS (1)
  1. ACTIMMUNE [Suspect]
     Active Substance: INTERFERON GAMMA-1B
     Indication: IDIOPATHIC PULMONARY FIBROSIS
     Route: 058
     Dates: start: 201009

REACTIONS (7)
  - Joint effusion [None]
  - Mobility decreased [None]
  - Pain in extremity [None]
  - Pain [None]
  - Off label use [None]
  - Musculoskeletal pain [None]
  - Arthralgia [None]
